FAERS Safety Report 24612497 (Version 1)
Quarter: 2024Q4

REPORT INFORMATION
  Report Type: Report from Study
  Country: ZA (occurrence: ZA)
  Receive Date: 20241113
  Receipt Date: 20241113
  Transmission Date: 20250114
  Serious: Yes (Hospitalization, Other)
  Sender: ALEXION PHARMACEUTICALS
  Company Number: ZA-AstraZeneca-CH-00732612A

PATIENT
  Age: 77 Year

DRUGS (22)
  1. DAPAGLIFLOZIN [Suspect]
     Active Substance: DAPAGLIFLOZIN
     Indication: Diabetes mellitus
  2. DAPAGLIFLOZIN [Suspect]
     Active Substance: DAPAGLIFLOZIN
  3. DAPAGLIFLOZIN [Suspect]
     Active Substance: DAPAGLIFLOZIN
  4. DAPAGLIFLOZIN [Suspect]
     Active Substance: DAPAGLIFLOZIN
  5. Spiractin [Concomitant]
     Indication: Hypertension
  6. Spiractin [Concomitant]
  7. Pantocid [Concomitant]
     Indication: Ulcer
  8. Pantocid [Concomitant]
  9. ELOCON [Concomitant]
     Active Substance: MOMETASONE FUROATE
  10. ELOCON [Concomitant]
     Active Substance: MOMETASONE FUROATE
  11. Lipogen [Concomitant]
     Indication: Blood cholesterol
  12. Lipogen [Concomitant]
  13. BISOPROLOL FUMARATE [Concomitant]
     Active Substance: BISOPROLOL FUMARATE
     Indication: Hypertension
  14. BISOPROLOL FUMARATE [Concomitant]
     Active Substance: BISOPROLOL FUMARATE
  15. CLOPIDOGREL BISULFATE [Concomitant]
     Active Substance: CLOPIDOGREL BISULFATE
  16. CLOPIDOGREL BISULFATE [Concomitant]
     Active Substance: CLOPIDOGREL BISULFATE
  17. Uromax [Concomitant]
     Indication: Prostatomegaly
  18. Uromax [Concomitant]
  19. ASPIRIN [Concomitant]
     Active Substance: ASPIRIN
  20. ASPIRIN [Concomitant]
     Active Substance: ASPIRIN
  21. METFORMIN HYDROCHLORIDE\VILDAGLIPTIN [Concomitant]
     Active Substance: METFORMIN HYDROCHLORIDE\VILDAGLIPTIN
     Indication: Diabetes mellitus
  22. METFORMIN HYDROCHLORIDE\VILDAGLIPTIN [Concomitant]
     Active Substance: METFORMIN HYDROCHLORIDE\VILDAGLIPTIN

REACTIONS (2)
  - Chest pain [Unknown]
  - Myocardial infarction [Unknown]
